FAERS Safety Report 10600310 (Version 1)
Quarter: 2014Q4

REPORT INFORMATION
  Report Type: Spontaneous
  Country: US (occurrence: US)
  Receive Date: 20141123
  Receipt Date: 20141123
  Transmission Date: 20150529
  Serious: Yes (Hospitalization)
  Sender: FDA-Public Use
  Company Number: US-MYLANLABS-2014M1011673

PATIENT

DRUGS (1)
  1. METHOTREXATE [Suspect]
     Active Substance: METHOTREXATE
     Indication: LYMPHOCYTIC LEUKAEMIA
     Dosage: HIGH DOSE IV METHOTREXATE
     Route: 037

REACTIONS (8)
  - Ill-defined disorder [Recovered/Resolved]
  - Acute kidney injury [Recovered/Resolved]
  - Clostridium difficile colitis [Recovered/Resolved]
  - Vomiting [Recovered/Resolved]
  - Small intestinal obstruction [Recovered/Resolved]
  - Erythema multiforme [Recovering/Resolving]
  - Nausea [Recovered/Resolved]
  - Delirium [Recovered/Resolved]
